FAERS Safety Report 11128950 (Version 1)
Quarter: 2015Q2

REPORT INFORMATION
  Report Type: Spontaneous
  Country: US (occurrence: US)
  Receive Date: 20150521
  Receipt Date: 20150521
  Transmission Date: 20150821
  Serious: No
  Sender: FDA-Public Use
  Company Number: US-009507513-1505USA009673

PATIENT
  Sex: Male

DRUGS (1)
  1. EMEND [Suspect]
     Active Substance: APREPITANT
     Dosage: UNK
     Dates: start: 20150420

REACTIONS (3)
  - Generalised erythema [Recovered/Resolved]
  - Blood pressure decreased [Recovered/Resolved]
  - Dyspnoea [Recovered/Resolved]

NARRATIVE: CASE EVENT DATE: 20150420
